FAERS Safety Report 4853066-9 (Version None)
Quarter: 2005Q4

REPORT INFORMATION
  Report Type: 
  Country: None (occurrence: None)
  Receive Date: 20051212
  Receipt Date: 20051128
  Transmission Date: 20060501
  Serious: Yes (Death)
  Sender: FDA-Public Use
  Company Number: B0402265A

PATIENT
  Age: 61 Year
  Sex: Male

DRUGS (6)
  1. ZOVIRAX [Suspect]
     Indication: PROPHYLAXIS
     Dosage: 10 MG/KG/THREE TIMES PER DAY / INTRA
  2. COTRIM [Concomitant]
  3. TRIMETHOPRIM [Concomitant]
  4. CYCLOSPORINE [Concomitant]
  5. AZATHIOPRINE [Concomitant]
  6. METHYLPREDNISOLONE [Concomitant]

REACTIONS (17)
  - ANURIA [None]
  - ASCITES [None]
  - BIOPSY LIVER ABNORMAL [None]
  - CARDIOPULMONARY FAILURE [None]
  - COMPLICATIONS OF TRANSPLANTED LIVER [None]
  - CYTOMEGALOVIRUS TEST POSITIVE [None]
  - DISEASE RECURRENCE [None]
  - EPSTEIN-BARR VIRUS TEST POSITIVE [None]
  - HAEMODIALYSIS [None]
  - HEPATIC FAILURE [None]
  - HEPATITIS CHOLESTATIC [None]
  - HERPES SEPSIS [None]
  - HERPES SIMPLEX [None]
  - LIVER TRANSPLANT [None]
  - MULTI-ORGAN FAILURE [None]
  - PNEUMONIA BACTERIAL [None]
  - TRACHEOBRONCHITIS VIRAL [None]
